FAERS Safety Report 6011450-4 (Version None)
Quarter: 2008Q4

REPORT INFORMATION
  Report Type: 
  Country: None (occurrence: None)
  Receive Date: 20081218
  Receipt Date: 20081209
  Transmission Date: 20090506
  Serious: Yes (Other)
  Sender: FDA-Public Use
  Company Number: US-PFIZER INC-2008082200

PATIENT
  Sex: Male
  Weight: 64.399 kg

DRUGS (5)
  1. DILANTIN [Suspect]
     Indication: EPILEPSY
     Dosage: 5 EVERY 1 DAYS
     Route: 048
     Dates: start: 19780101
  2. OXYCONTIN [Concomitant]
  3. OXYCODONE [Concomitant]
     Route: 048
  4. SOMA [Concomitant]
     Route: 048
  5. MS CONTIN [Concomitant]
     Route: 048

REACTIONS (5)
  - BACK DISORDER [None]
  - PAIN [None]
  - TOOTH DISORDER [None]
  - TOOTH LOSS [None]
  - UNEVALUABLE EVENT [None]
